FAERS Safety Report 4365564-5 (Version None)
Quarter: 2004Q2

REPORT INFORMATION
  Report Type: 
  Country: None (occurrence: None)
  Receive Date: 20040526
  Receipt Date: 20040517
  Transmission Date: 20050107
  Serious: Yes (Hospitalization)
  Sender: FDA-Public Use
  Company Number: US-BRISTOL-MYERS SQUIBB COMPANY-12588901

PATIENT
  Age: 67 Year
  Sex: Female
  Weight: 104 kg

DRUGS (5)
  1. KENALOG-40 [Suspect]
     Indication: ARTHRALGIA
     Dates: start: 20040426, end: 20040426
  2. MARCAINE [Concomitant]
     Dates: start: 20040426, end: 20040426
  3. METHYLPARABEN [Concomitant]
     Dates: start: 20040426, end: 20040426
  4. LOVASTATIN [Concomitant]
  5. OCUVITE [Concomitant]

REACTIONS (8)
  - BLOOD PRESSURE INCREASED [None]
  - FATIGUE [None]
  - HOT FLUSH [None]
  - HYPERSENSITIVITY [None]
  - INSOMNIA [None]
  - POSTMENOPAUSAL HAEMORRHAGE [None]
  - SWELLING FACE [None]
  - WHITE BLOOD CELL COUNT INCREASED [None]
